FAERS Safety Report 6370872-2 (Version None)
Quarter: 2009Q3

REPORT INFORMATION
  Report Type: 
  Country: None (occurrence: None)
  Receive Date: 20090923
  Receipt Date: 20070316
  Transmission Date: 20100115
  Serious: Yes (Hospitalization)
  Sender: FDA-Public Use
  Company Number: US-ASTRAZENECA-2006UW22618

PATIENT
  Age: 21397 Day
  Sex: Male
  Weight: 86.2 kg

DRUGS (40)
  1. SEROQUEL [Suspect]
     Indication: BIPOLAR DISORDER
     Dosage: 25-200 MG
     Route: 048
     Dates: start: 19981020
  2. ROSIGLITAZONE MALEATE [Concomitant]
     Dosage: 4-8 MG
     Route: 048
  3. DILTIAZEM [Concomitant]
     Route: 048
  4. RABEPRAZOLE NA [Concomitant]
     Route: 048
  5. METFORMIN HCL [Concomitant]
     Dosage: 500-1000 MG
     Route: 048
  6. GUAIFENESIN [Concomitant]
     Dosage: 500-600 MG
     Route: 048
  7. LIOTHYRONINE SODIUM [Concomitant]
     Route: 048
  8. HYDROCHLOROTHIAZIDE [Concomitant]
     Route: 048
  9. LOSARTAN [Concomitant]
     Dosage: 50-100 MG
     Route: 048
  10. GLIPIZIDE [Concomitant]
     Dosage: 5-20 MG
     Route: 048
  11. LAMOTRIGINE [Concomitant]
     Route: 048
  12. LORATADINE [Concomitant]
     Route: 048
  13. COLCHICINE [Concomitant]
     Route: 048
  14. CODEINE SULFATE [Concomitant]
     Route: 048
  15. TERAZOSIN HCL [Concomitant]
     Route: 048
  16. IPRATROPIUM BROMIDE [Concomitant]
     Route: 055
  17. ALBUTEROL [Concomitant]
     Route: 055
  18. MORPHINE [Concomitant]
     Dosage: 15-30 MG
     Route: 048
  19. PREDNISONE [Concomitant]
     Route: 048
  20. FLUOROURACIL [Concomitant]
     Route: 061
  21. OMEPRAZOLE [Concomitant]
     Route: 048
  22. LANSOPRAZOLE [Concomitant]
     Route: 048
  23. CALCIPOTRIENE [Concomitant]
     Route: 061
  24. CHLORAL HYDRATE [Concomitant]
     Route: 048
  25. THEOPHYLLINE [Concomitant]
     Dosage: 200- 400 MG
     Route: 048
  26. SALMETEROL [Concomitant]
     Route: 055
  27. NIFEDIPINE [Concomitant]
     Dosage: 30-60 MG
     Route: 048
  28. SIMVASTATIN [Concomitant]
     Dosage: 20-40 MG
     Route: 048
  29. DOXEPIN HCL [Concomitant]
     Route: 048
  30. AZELASTINE HCL [Concomitant]
     Route: 045
  31. BECLOMETHASONE DIPROPIONATE [Concomitant]
     Route: 045
  32. TRIAMCINOLONE [Concomitant]
     Route: 048
  33. CYCLOBENZAPRINE HCL [Concomitant]
     Route: 048
  34. AMITRIPTYLINE HCL [Concomitant]
     Dosage: 10- 50 MG
     Route: 048
  35. FEXOFENADINE HCL [Concomitant]
     Route: 048
  36. LITHIUM CARBONATE [Concomitant]
     Dosage: 300 - 900 MG
     Route: 048
  37. GABAPENTIN [Concomitant]
     Route: 048
  38. GEMFIBROZIL [Concomitant]
     Route: 048
  39. HYDROXYZINE HCL [Concomitant]
     Dosage: 10 - 25 MG
     Route: 065
  40. BENZONATATE [Concomitant]
     Route: 048

REACTIONS (6)
  - CHEST PAIN [None]
  - DYSPNOEA [None]
  - HAEMATOCHEZIA [None]
  - MUSCULOSKELETAL PAIN [None]
  - NECK PAIN [None]
  - ROAD TRAFFIC ACCIDENT [None]
